FAERS Safety Report 7734687-2 (Version None)
Quarter: 2011Q3

REPORT INFORMATION
  Report Type: 
  Country: None (occurrence: None)
  Receive Date: 20110907
  Receipt Date: 20110824
  Transmission Date: 20111222
  Serious: No
  Sender: FDA-Public Use
  Company Number: CA-ELI_LILLY_AND_COMPANY-CA201108007329

PATIENT
  Sex: Male

DRUGS (5)
  1. ZYPREXA ZYDIS [Suspect]
     Dosage: 20 MG, EACH EVENING
  2. RAMIPRIL [Concomitant]
  3. ZYPREXA ZYDIS [Suspect]
     Indication: SCHIZOPHRENIA
     Dosage: 10 MG, BID
  4. SEROQUEL [Concomitant]
  5. DIVALPROEX SODIUM [Concomitant]

REACTIONS (5)
  - HYPERGLYCAEMIA [None]
  - HAEMOGLOBIN INCREASED [None]
  - BLOOD CHOLESTEROL INCREASED [None]
  - BLOOD TRIGLYCERIDES INCREASED [None]
  - WEIGHT INCREASED [None]
